FAERS Safety Report 4383635-4 (Version None)
Quarter: 2004Q2

REPORT INFORMATION
  Report Type: 
  Country: None (occurrence: None)
  Receive Date: 20040623
  Receipt Date: 20030828
  Transmission Date: 20050107
  Serious: Yes (Other)
  Sender: FDA-Public Use
  Company Number: US-GLAXOSMITHKLINE-A0424599A

PATIENT
  Sex: Male

DRUGS (10)
  1. AVANDIA [Suspect]
     Dosage: 8MG PER DAY
     Dates: start: 20000201, end: 20010101
  2. LASIX [Concomitant]
  3. PRECOSE [Concomitant]
  4. GLYNASE [Concomitant]
     Dosage: 6MG TWICE PER DAY
  5. GLUCOPHAGE [Concomitant]
     Dosage: 1000MG TWICE PER DAY
  6. LISINOPRIL [Concomitant]
     Dosage: 10MG PER DAY
  7. ZOCOR [Concomitant]
     Dosage: 20MG PER DAY
  8. VITAMIN E [Concomitant]
     Dosage: 400IU PER DAY
  9. ASPIRIN [Concomitant]
     Dosage: 325MG PER DAY
  10. ERYTHROMYCIN [Concomitant]
     Indication: ROSACEA

REACTIONS (5)
  - CARDIAC FAILURE CONGESTIVE [None]
  - DILATATION ATRIAL [None]
  - PULMONARY HYPERTENSION [None]
  - PULMONARY OEDEMA [None]
  - VENTRICULAR HYPERTROPHY [None]
